FAERS Safety Report 9605271 (Version 1)
Quarter: 2013Q4

REPORT INFORMATION
  Report Type: Spontaneous
  Country: GB (occurrence: GB)
  Receive Date: 20131008
  Receipt Date: 20131008
  Transmission Date: 20140711
  Serious: Yes (Other)
  Sender: FDA-Public Use
  Company Number: GB-GLAXOSMITHKLINE-B0928264A

PATIENT
  Age: 68 Year
  Sex: Male
  Weight: 63 kg

DRUGS (12)
  1. MELPHALAN [Suspect]
     Indication: PLASMA CELL MYELOMA
  2. ADRIAMYCIN [Suspect]
     Indication: PLASMA CELL MYELOMA
  3. BORTEZOMIB [Suspect]
     Indication: PLASMA CELL MYELOMA
  4. CYCLOPHOSPHAMIDE [Suspect]
     Indication: PLASMA CELL MYELOMA
  5. REVLIMID [Suspect]
     Indication: PLASMA CELL MYELOMA
     Dosage: 25MG PER DAY
     Dates: start: 20120420, end: 20130726
  6. THALIDOMIDE [Suspect]
     Indication: PLASMA CELL MYELOMA
     Route: 065
  7. CALCICHEW [Concomitant]
     Indication: PROPHYLAXIS
  8. DEXAMETHASONE [Concomitant]
     Indication: PLASMA CELL MYELOMA
  9. RAMIPRIL [Concomitant]
  10. SIMVASTATIN [Concomitant]
     Indication: BLOOD CHOLESTEROL INCREASED
  11. FILGRASTIM [Concomitant]
  12. ZOMETA [Concomitant]
     Indication: HYPERTENSION

REACTIONS (1)
  - Sarcoma of skin [Not Recovered/Not Resolved]
